FAERS Safety Report 5890265-1 (Version None)
Quarter: 2008Q3

REPORT INFORMATION
  Report Type: 
  Country: None (occurrence: None)
  Receive Date: 20080919
  Receipt Date: 20080909
  Transmission Date: 20090109
  Serious: Yes (Other)
  Sender: FDA-Public Use
  Company Number: AU-PFIZER INC-2008077769

PATIENT
  Sex: Female

DRUGS (6)
  1. CHANTIX [Suspect]
     Dates: start: 20080801
  2. IRBESARTAN [Concomitant]
  3. INDAPAMIDE [Concomitant]
  4. DIAFORMIN [Concomitant]
  5. VERAPAMIL [Concomitant]
  6. CRESTOR [Concomitant]

REACTIONS (4)
  - ABDOMINAL DISTENSION [None]
  - JOINT SWELLING [None]
  - SWELLING FACE [None]
  - WEIGHT INCREASED [None]
